FAERS Safety Report 4799842-2 (Version None)
Quarter: 2005Q4

REPORT INFORMATION
  Report Type: 
  Country: None (occurrence: None)
  Receive Date: 20051017
  Receipt Date: 20050920
  Transmission Date: 20060501
  Serious: Yes (Death, Life-Threatening, Hospitalization)
  Sender: FDA-Public Use
  Company Number: 2005AP04980

PATIENT
  Age: 24103 Day
  Sex: Female

DRUGS (8)
  1. IRESSA [Suspect]
     Indication: NON-SMALL CELL LUNG CANCER STAGE IIIB
     Route: 048
     Dates: start: 20050906
  2. IRESSA [Suspect]
     Indication: ADENOCARCINOMA
     Route: 048
     Dates: start: 20050906
  3. TRAMADOL HCL [Concomitant]
     Indication: PAIN
     Route: 048
     Dates: start: 20050607
  4. ZOLEDRONIC ACID [Concomitant]
     Indication: METASTASES TO BONE
     Route: 042
     Dates: start: 20050614
  5. CALTRATE [Concomitant]
     Indication: METASTASES TO BONE
     Route: 048
     Dates: start: 20050607
  6. MULTI-VITAMIN [Concomitant]
     Indication: VITAMIN SUPPLEMENTATION
     Route: 048
     Dates: start: 20050607
  7. FERROUS SULFATE TAB [Concomitant]
     Indication: ANAEMIA
     Route: 048
     Dates: start: 20050607
  8. VITAMIN D [Concomitant]
     Indication: MINERAL SUPPLEMENTATION
     Route: 048
     Dates: start: 20050607

REACTIONS (11)
  - ANOREXIA [None]
  - CARDIOMEGALY [None]
  - DIARRHOEA [None]
  - DYSPNOEA [None]
  - HYPONATRAEMIA [None]
  - HYPOTENSION [None]
  - LYMPHADENOPATHY [None]
  - METABOLIC ACIDOSIS [None]
  - MUSCULAR WEAKNESS [None]
  - PLEURAL EFFUSION [None]
  - PULMONARY OEDEMA [None]
